FAERS Safety Report 15334659 (Version 1)
Quarter: 2018Q3

REPORT INFORMATION
  Report Type: Spontaneous
  Country: BR (occurrence: BR)
  Receive Date: 20180830
  Receipt Date: 20180830
  Transmission Date: 20181010
  Serious: Yes (Hospitalization, Other)
  Sender: FDA-Public Use
  Company Number: BR-SA-2018SA230175

PATIENT
  Sex: Female

DRUGS (2)
  1. LEFLUNOMIDE. [Suspect]
     Active Substance: LEFLUNOMIDE
     Dosage: UNK UNK, UNK
     Route: 065
     Dates: start: 2016
  2. TOFACITINIB [Concomitant]
     Active Substance: TOFACITINIB
     Indication: ARTHRITIS
     Dosage: UNK UNK, BID
     Route: 065
     Dates: start: 2016

REACTIONS (3)
  - Viral infection [Unknown]
  - Pleural effusion [Unknown]
  - Pericardial effusion [Unknown]
